FAERS Safety Report 15044084 (Version 1)
Quarter: 2018Q2

REPORT INFORMATION
  Report Type: Spontaneous
  Country: DE (occurrence: DE)
  Receive Date: 20180621
  Receipt Date: 20180621
  Transmission Date: 20180711
  Serious: Yes (Other)
  Sender: FDA-Public Use
  Company Number: DE-009507513-1806DEU008151

PATIENT
  Sex: Female

DRUGS (1)
  1. NUVARING [Suspect]
     Active Substance: ETHINYL ESTRADIOL\ETONOGESTREL
     Indication: CONTRACEPTION
     Dosage: 1 VAGINAL RING
     Route: 067
     Dates: end: 201803

REACTIONS (4)
  - Dyspnoea [Unknown]
  - Pain [Not Recovered/Not Resolved]
  - Abdominal pain lower [Not Recovered/Not Resolved]
  - Drug intolerance [Unknown]

NARRATIVE: CASE EVENT DATE: 2018
